FAERS Safety Report 20561706 (Version 1)
Quarter: 2022Q1

REPORT INFORMATION
  Report Type: Spontaneous
  Country: IT (occurrence: IT)
  Receive Date: 20220307
  Receipt Date: 20220307
  Transmission Date: 20220423
  Serious: Yes (Other)
  Sender: FDA-Public Use
  Company Number: IT-AMGEN-ITASP2022034045

PATIENT

DRUGS (4)
  1. ADALIMUMAB [Suspect]
     Active Substance: ADALIMUMAB
     Indication: Juvenile idiopathic arthritis
     Dosage: UNK
     Route: 065
  2. ADALIMUMAB [Suspect]
     Active Substance: ADALIMUMAB
     Indication: Uveitis
  3. METHOTREXATE [Concomitant]
     Active Substance: METHOTREXATE
  4. AZATHIOPRINE [Concomitant]
     Active Substance: AZATHIOPRINE

REACTIONS (9)
  - Iris adhesions [Unknown]
  - Macular oedema [Unknown]
  - Retinal detachment [Unknown]
  - Cyclitic membrane [Unknown]
  - Ocular hypertension [Unknown]
  - Cataract [Unknown]
  - Lens extraction [Unknown]
  - Intraocular pressure increased [Unknown]
  - Drug specific antibody present [Unknown]
